FAERS Safety Report 14311159 (Version 3)
Quarter: 2018Q1

REPORT INFORMATION
  Report Type: Spontaneous
  Country: BR (occurrence: BR)
  Receive Date: 20171221
  Receipt Date: 20180215
  Transmission Date: 20180509
  Serious: Yes (Other)
  Sender: FDA-Public Use
  Company Number: BR-ROCHE-2041963

PATIENT
  Age: 46 Year
  Sex: Female
  Weight: 81.5 kg

DRUGS (15)
  1. HYDROCHLOROTHIAZIDE. [Concomitant]
     Active Substance: HYDROCHLOROTHIAZIDE
     Dosage: CONTINUOUS USE
     Route: 048
  2. CAPECITABINE. [Concomitant]
     Active Substance: CAPECITABINE
     Indication: PALLIATIVE CARE
     Dosage: CAPECITABINE 500 MG, 4 TABLETS IN THE MORNING AND 3 AT NIGHT
     Route: 048
     Dates: start: 20170802, end: 20170815
  3. METFORMIN [Concomitant]
     Active Substance: METFORMIN HYDROCHLORIDE
     Indication: HYPOGLYCAEMIA
     Dosage: CONTINUOUS USE
     Route: 048
  4. HERCEPTIN [Suspect]
     Active Substance: TRASTUZUMAB
     Indication: PALLIATIVE CARE
     Route: 042
     Dates: start: 20170807, end: 20170807
  5. DOCETAXEL. [Suspect]
     Active Substance: DOCETAXEL
     Indication: BREAST CANCER
     Route: 065
     Dates: start: 201612, end: 201703
  6. ZOLEDRONIC ACID [Suspect]
     Active Substance: ZOLEDRONIC ACID
     Indication: PALLIATIVE CARE
     Route: 065
     Dates: start: 201603, end: 201611
  7. OXYCODONE [Concomitant]
     Active Substance: OXYCODONE
     Route: 048
     Dates: start: 20170802, end: 20170831
  8. HERCEPTIN [Suspect]
     Active Substance: TRASTUZUMAB
     Indication: BREAST CANCER
  9. ZOLEDRONIC ACID [Suspect]
     Active Substance: ZOLEDRONIC ACID
     Route: 065
     Dates: start: 201704, end: 201707
  10. ENALAPRIL [Concomitant]
     Active Substance: ENALAPRIL
     Dosage: CONTINUOUS USE
     Route: 048
  11. HERCEPTIN [Suspect]
     Active Substance: TRASTUZUMAB
     Indication: PALLIATIVE CARE
     Route: 065
     Dates: start: 201603, end: 201611
  12. CAPECITABINE. [Concomitant]
     Active Substance: CAPECITABINE
     Indication: BREAST CANCER
     Dosage: ONE TABLET AT NIGHT ALONG WITH THE THREE OTHER TABLES OF CAPECITABINE 500 MG SHE TOOK AT NIGHT
     Route: 048
     Dates: start: 20170802, end: 20170815
  13. HERCEPTIN [Suspect]
     Active Substance: TRASTUZUMAB
     Indication: BREAST CANCER
  14. DOCETAXEL. [Suspect]
     Active Substance: DOCETAXEL
     Indication: PALLIATIVE CARE
     Route: 065
     Dates: start: 201603, end: 201611
  15. ZOLEDRONIC ACID [Suspect]
     Active Substance: ZOLEDRONIC ACID
     Indication: BREAST CANCER
     Route: 065
     Dates: start: 201612, end: 201703

REACTIONS (4)
  - Chills [Recovered/Resolved]
  - Bone cancer [Not Recovered/Not Resolved]
  - Tremor [Recovered/Resolved]
  - Lung neoplasm malignant [Not Recovered/Not Resolved]

NARRATIVE: CASE EVENT DATE: 201701
